FAERS Safety Report 6030920-6 (Version None)
Quarter: 2009Q1

REPORT INFORMATION
  Report Type: 
  Country: None (occurrence: None)
  Receive Date: 20090106
  Receipt Date: 20081231
  Transmission Date: 20090719
  Serious: Yes (Hospitalization)
  Sender: FDA-Public Use
  Company Number: A0761822A

PATIENT
  Sex: Male

DRUGS (1)
  1. DIPHENHYDRAMINE HYDROCHLORIDE [Suspect]
     Indication: DRUG USE FOR UNKNOWN INDICATION
     Dosage: 2 CAPLET (S) / SINGLE DOSE / ORAL
     Route: 048
     Dates: start: 19960101, end: 19960101

REACTIONS (6)
  - ABNORMAL DREAMS [None]
  - AGGRESSION [None]
  - BIPOLAR DISORDER [None]
  - COLD SWEAT [None]
  - HYPERHIDROSIS [None]
  - HYPERSOMNIA [None]
